FAERS Safety Report 6529366-3 (Version None)
Quarter: 2010Q1

REPORT INFORMATION
  Report Type: 
  Country: None (occurrence: None)
  Receive Date: 20100104
  Receipt Date: 20091224
  Transmission Date: 20100710
  Serious: Yes (Other)
  Sender: FDA-Public Use
  Company Number: AE-2009-341

PATIENT
  Age: 50 Year
  Sex: Female
  Weight: 110 kg

DRUGS (5)
  1. METFORMIN [Suspect]
     Indication: DIABETES MELLITUS
     Dosage: 500MG, ORAL
     Route: 048
     Dates: start: 20090801, end: 20090821
  2. FERROUS FUMARTE [Concomitant]
  3. OMEPRAZOLE [Concomitant]
  4. PIOGLITAZONE [Concomitant]
  5. SIMVASTATIN [Concomitant]

REACTIONS (3)
  - PETECHIAE [None]
  - RASH PRURITIC [None]
  - URTICARIA [None]
